FAERS Safety Report 11011052 (Version 1)
Quarter: 2015Q2

REPORT INFORMATION
  Report Type: Report from Study
  Country: DE (occurrence: DE)
  Receive Date: 20150410
  Receipt Date: 20150410
  Transmission Date: 20150821
  Serious: Yes (Hospitalization, Other)
  Sender: FDA-Public Use
  Company Number: DE-ABBVIE-15K-062-1333198-00

PATIENT
  Age: 50 Year
  Sex: Male

DRUGS (21)
  1. METHOTREXATE [Concomitant]
     Active Substance: METHOTREXATE
     Indication: PRODUCT USED FOR UNKNOWN INDICATION
  2. SULFASALAZINE. [Concomitant]
     Active Substance: SULFASALAZINE
     Indication: PRODUCT USED FOR UNKNOWN INDICATION
  3. VITAMIN D3 [Concomitant]
     Active Substance: CHOLECALCIFEROL
     Indication: PRODUCT USED FOR UNKNOWN INDICATION
     Dosage: 1-0-0
  4. NATULAN [Concomitant]
     Active Substance: PROCARBAZINE HYDROCHLORIDE
     Indication: PRODUCT USED FOR UNKNOWN INDICATION
     Dosage: 1-0-0; 100MG/M2, ABS 200MG
     Dates: start: 20150322, end: 20150329
  5. KAMILLAN [Concomitant]
     Indication: PRODUCT USED FOR UNKNOWN INDICATION
  6. PANTOZOL [Concomitant]
     Active Substance: PANTOPRAZOLE SODIUM
     Indication: PRODUCT USED FOR UNKNOWN INDICATION
     Dosage: 1-0-0
  7. HUMIRA [Suspect]
     Active Substance: ADALIMUMAB
     Indication: ANTI-CYCLIC CITRULLINATED PEPTIDE ANTIBODY POSITIVE
     Route: 058
     Dates: start: 20071201, end: 201411
  8. MCP [Concomitant]
     Active Substance: METOCLOPRAMIDE HYDROCHLORIDE
     Indication: PRODUCT USED FOR UNKNOWN INDICATION
  9. PENICILLIN NOS [Suspect]
     Active Substance: PENICILLIN
     Indication: PRODUCT USED FOR UNKNOWN INDICATION
     Route: 065
  10. MAGNESIUM [Concomitant]
     Active Substance: MAGNESIUM
     Indication: PRODUCT USED FOR UNKNOWN INDICATION
  11. COTRIM D.S. [Concomitant]
     Active Substance: SULFAMETHOXAZOLE\TRIMETHOPRIM
     Indication: PRODUCT USED FOR UNKNOWN INDICATION
  12. AMINEURIN [Concomitant]
     Active Substance: AMITRIPTYLINE HYDROCHLORIDE
     Indication: PRODUCT USED FOR UNKNOWN INDICATION
     Dosage: AT NIGHT
  13. CLINDAMYCIN [Suspect]
     Active Substance: CLINDAMYCIN\CLINDAMYCIN PHOSPHATE
     Indication: PRODUCT USED FOR UNKNOWN INDICATION
     Route: 065
  14. LODOTRA [Concomitant]
     Active Substance: PREDNISONE
     Indication: PRODUCT USED FOR UNKNOWN INDICATION
     Dosage: 0-0-0-1
  15. PREDNISOLONE. [Concomitant]
     Active Substance: PREDNISOLONE
     Indication: PRODUCT USED FOR UNKNOWN INDICATION
     Dosage: 1-0-0; 40MG/M2, ABS 80MG, AFTER 05-APR-2015 DAILY DOSE REDUCTION OF 10MG
  16. HUMIRA [Suspect]
     Active Substance: ADALIMUMAB
     Indication: RHEUMATOID ARTHRITIS
  17. LEVOFLOXACINE [Suspect]
     Active Substance: LEVOFLOXACIN
     Indication: PRODUCT USED FOR UNKNOWN INDICATION
     Route: 065
  18. NOVALGIN [Concomitant]
     Active Substance: METAMIZOLE SODIUM
     Indication: PRODUCT USED FOR UNKNOWN INDICATION
     Dosage: 4X AS NEEDED
  19. NOVALGIN [Concomitant]
     Active Substance: METAMIZOLE SODIUM
     Dosage: 4X AS NEEDED
  20. ACIC [Concomitant]
     Indication: PRODUCT USED FOR UNKNOWN INDICATION
     Dosage: 1-1-1
  21. CEFUROXIME. [Concomitant]
     Active Substance: CEFUROXIME
     Indication: PRODUCT USED FOR UNKNOWN INDICATION
     Dosage: 1-0-1

REACTIONS (10)
  - Hepatic lesion [Unknown]
  - Drug hypersensitivity [Unknown]
  - Polyneuropathy [Unknown]
  - Hodgkin^s disease mixed cellularity stage IV [Recovering/Resolving]
  - Glaucoma [Unknown]
  - Anaemia [Unknown]
  - Neutropenic infection [Recovered/Resolved]
  - Osteoporosis [Unknown]
  - Muscle spasms [Unknown]
  - Tendon rupture [Unknown]

NARRATIVE: CASE EVENT DATE: 2014
